FAERS Safety Report 20506177 (Version 1)
Quarter: 2022Q1

REPORT INFORMATION
  Report Type: Spontaneous
  Country: US (occurrence: None)
  Receive Date: 20220222
  Receipt Date: 20220222
  Transmission Date: 20220424
  Serious: Yes (Disabling)
  Sender: FDA-Public Use
  Company Number: None

PATIENT
  Age: 65 Year
  Sex: Male
  Weight: 99.79 kg

DRUGS (14)
  1. ABIRATERONE [Suspect]
     Active Substance: ABIRATERONE
     Indication: Prostate cancer
     Dosage: FREQUENCY : DAILY;?
     Route: 048
  2. NORCO [Concomitant]
     Active Substance: ACETAMINOPHEN\HYDROCODONE BITARTRATE
  3. ELIGARD [Concomitant]
     Active Substance: LEUPROLIDE ACETATE
  4. LISINOPRIL [Concomitant]
     Active Substance: LISINOPRIL
  5. HYDROCHLOROTHIAZIDE [Concomitant]
     Active Substance: HYDROCHLOROTHIAZIDE
  6. OMEPRAZOLE [Concomitant]
     Active Substance: OMEPRAZOLE
  7. ACYCLOVIR [Concomitant]
     Active Substance: ACYCLOVIR
  8. CALCIUM [Concomitant]
     Active Substance: CALCIUM
  9. CITRATE [Concomitant]
     Active Substance: CITRIC ACID MONOHYDRATE
  10. VITAMIN D3 [Concomitant]
     Active Substance: CHOLECALCIFEROL
  11. BISOPROLOL [Concomitant]
     Active Substance: BISOPROLOL
  12. PREDNISONE [Suspect]
     Active Substance: PREDNISONE
  13. ORGOVYX [Concomitant]
     Active Substance: RELUGOLIX
  14. XGEVA [Concomitant]
     Active Substance: DENOSUMAB

REACTIONS (4)
  - Condition aggravated [None]
  - Gait inability [None]
  - Hypoaesthesia [None]
  - Paraesthesia [None]
